FAERS Safety Report 5513532-X (Version None)
Quarter: 2007Q4

REPORT INFORMATION
  Report Type: 
  Country: None (occurrence: None)
  Receive Date: 20071108
  Receipt Date: 20071029
  Transmission Date: 20080405
  Serious: Yes (Disabling)
  Sender: FDA-Public Use
  Company Number: OSCN-NO-0604S-0092

PATIENT
  Age: 32 Year
  Sex: Female

DRUGS (2)
  1. OMNISCAN [Suspect]
     Indication: DRUG USE FOR UNKNOWN INDICATION
     Dosage: SEE IMAGE
     Route: 042
     Dates: start: 20041201, end: 20041201
  2. OMNISCAN [Suspect]
     Indication: DRUG USE FOR UNKNOWN INDICATION
     Dosage: SEE IMAGE
     Route: 042
     Dates: start: 20030101, end: 20050101

REACTIONS (5)
  - ECZEMA [None]
  - GASTRIC DISORDER [None]
  - NEPHROGENIC SYSTEMIC FIBROSIS [None]
  - OCULAR HYPERAEMIA [None]
  - WEIGHT DECREASED [None]
